FAERS Safety Report 7518163-8 (Version None)
Quarter: 2011Q2

REPORT INFORMATION
  Report Type: 
  Country: None (occurrence: None)
  Receive Date: 20110531
  Receipt Date: 20110531
  Transmission Date: 20111010
  Serious: Yes (Hospitalization)
  Sender: FDA-Public Use
  Company Number: None

PATIENT
  Sex: Female
  Weight: 26.3 kg

DRUGS (4)
  1. VINCRISTINE SULFATE [Suspect]
     Dosage: 2.8 MG
  2. METHOTREXATE [Suspect]
     Dosage: 52 MG
  3. MERCAPTOPURINE [Suspect]
     Dosage: 1400 MG
  4. PREDNISONE [Suspect]
     Dosage: 187.5 MG

REACTIONS (1)
  - ANAPHYLACTIC REACTION [None]
